FAERS Safety Report 25094757 (Version 1)
Quarter: 2025Q1

REPORT INFORMATION
  Report Type: Spontaneous
  Country: US (occurrence: None)
  Receive Date: 20250318
  Receipt Date: 20250318
  Transmission Date: 20250409
  Serious: Yes (Disabling, Other)
  Sender: FDA-CTU
  Company Number: None

PATIENT
  Sex: Female

DRUGS (3)
  1. ZOLOFT [Suspect]
     Active Substance: SERTRALINE HYDROCHLORIDE
  2. OLANZAPINE [Concomitant]
     Active Substance: OLANZAPINE
  3. LITHIUM [Suspect]
     Active Substance: LITHIUM

REACTIONS (1)
  - Growth retardation [None]
